FAERS Safety Report 9344928 (Version 3)
Quarter: 2013Q3

REPORT INFORMATION
  Report Type: Report from Study
  Country: DE (occurrence: DE)
  Receive Date: 20130612
  Receipt Date: 20130828
  Transmission Date: 20140515
  Serious: Yes (Hospitalization)
  Sender: FDA-Public Use
  Company Number: DE-BRISTOL-MYERS SQUIBB COMPANY-19005909

PATIENT
  Age: 70 Year
  Sex: Female

DRUGS (3)
  1. CARBOPLATIN [Suspect]
     Indication: OVARIAN EPITHELIAL CANCER
     Dosage: ON 10OCT12-13FEB13:127DAYS?15APR13-?LAST DOSE 22JAN13:533.55MG?CYC4
     Route: 042
     Dates: start: 20121010
  2. PACLITAXEL [Suspect]
     Indication: OVARIAN EPITHELIAL CANCER
     Dosage: ON 10OCT12-13FEB13:127DAYS?15APR13-?LAST DOSE 22JAN13:332.5MG?CYC 4
     Route: 042
     Dates: start: 20121010
  3. BEVACIZUMAB [Suspect]
     Indication: OVARIAN EPITHELIAL CANCER
     Dosage: ON 10OCT12-13FEB13:127DAYS?15APR13-?LAST DOSE 12FEB13:800MG?INF?CYC 4?INF SOLN?15 MG/KG
     Route: 042
     Dates: start: 20121010

REACTIONS (1)
  - Oral cavity fistula [Not Recovered/Not Resolved]
